FAERS Safety Report 8337077-7 (Version None)
Quarter: 2012Q2

REPORT INFORMATION
  Report Type: 
  Country: None (occurrence: None)
  Receive Date: 20120504
  Receipt Date: 20110627
  Transmission Date: 20120825
  Serious: Yes (Other)
  Sender: FDA-Public Use
  Company Number: US-TEVA-2011003413

PATIENT
  Sex: Female
  Weight: 68.1 kg

DRUGS (9)
  1. DIAZEPAM [Concomitant]
  2. LEXAPRO [Concomitant]
     Dates: start: 20090101
  3. OMEPRAZOLE [Concomitant]
     Dates: start: 20010101
  4. AMBIEN [Concomitant]
     Dates: start: 20110101
  5. NUVIGIL [Suspect]
     Dosage: 125 MILLIGRAM;
     Route: 048
  6. HYDROXYZINE [Concomitant]
     Dates: start: 20100101
  7. OXYBUTYNIN [Concomitant]
     Dates: start: 20040101
  8. NUVIGIL [Suspect]
     Indication: FATIGUE
     Dosage: 150 MILLIGRAM;
     Route: 048
     Dates: start: 20101201
  9. BENADRYL [Concomitant]

REACTIONS (5)
  - INTENTIONAL DRUG MISUSE [None]
  - SUICIDAL IDEATION [None]
  - THERAPEUTIC RESPONSE UNEXPECTED [None]
  - POOR QUALITY SLEEP [None]
  - DRUG INEFFECTIVE FOR UNAPPROVED INDICATION [None]
